FAERS Safety Report 23059566 (Version 1)
Quarter: 2023Q4

REPORT INFORMATION
  Report Type: Spontaneous
  Country: US (occurrence: US)
  Receive Date: 20231012
  Receipt Date: 20231012
  Transmission Date: 20240109
  Serious: No
  Sender: FDA-Public Use
  Company Number: US-MYLANLABS-2023M1105260

PATIENT
  Sex: Female

DRUGS (1)
  1. ESTRADIOL TRANSDERMAL SYSTEM [Suspect]
     Active Substance: ESTRADIOL
     Indication: Hormone therapy
     Dosage: 0.1 MILLIGRAM, QD
     Route: 062

REACTIONS (4)
  - Application site rash [Unknown]
  - Application site irritation [Unknown]
  - Expired product administered [Unknown]
  - Product adhesion issue [Unknown]
